FAERS Safety Report 7772105-9 (Version None)
Quarter: 2011Q3

REPORT INFORMATION
  Report Type: 
  Country: None (occurrence: None)
  Receive Date: 20110922
  Receipt Date: 20101214
  Transmission Date: 20111222
  Serious: Yes (Other)
  Sender: FDA-Public Use
  Company Number: US-ASTRAZENECA-2010SE59432

PATIENT
  Age: 32 Year
  Sex: Female
  Weight: 65.8 kg

DRUGS (3)
  1. LITHIUM [Concomitant]
  2. SEROQUEL [Suspect]
     Route: 048
     Dates: start: 20091201
  3. SEROQUEL [Suspect]
     Indication: BIPOLAR I DISORDER
     Route: 048
     Dates: start: 20050101

REACTIONS (3)
  - SUICIDE ATTEMPT [None]
  - DRUG WITHDRAWAL SYNDROME [None]
  - DRUG DOSE OMISSION [None]
